APPROVED DRUG PRODUCT: CAPLYTA
Active Ingredient: LUMATEPERONE TOSYLATE
Strength: EQ 42MG BASE
Dosage Form/Route: CAPSULE;ORAL
Application: N209500 | Product #001
Applicant: INTRA-CELLULAR THERAPIES INC
Approved: Dec 20, 2019 | RLD: Yes | RS: Yes | Type: RX

PATENTS:
Patent 9956227 | Expires: Dec 3, 2034
Patent 9199995 | Expires: Mar 12, 2029
Patent 8598119 | Expires: Dec 28, 2029
Patent 12122792 | Expires: Dec 10, 2040
Patent 12122792 | Expires: Dec 10, 2040
Patent 12090155 | Expires: Jul 7, 2040
Patent 10695345 | Expires: Aug 30, 2039
Patent 12128043 | Expires: Aug 30, 2039
Patent 12128043 | Expires: Aug 30, 2039
Patent 11806348 | Expires: Aug 30, 2039
Patent 11806348 | Expires: Aug 30, 2039
Patent 12070459 | Expires: Aug 30, 2039
Patent 12070459 | Expires: Aug 30, 2039
Patent 12122792 | Expires: Dec 10, 2040
Patent 12070459 | Expires: Aug 30, 2039
Patent 11980617 | Expires: Oct 27, 2039
Patent 12409176 | Expires: Mar 15, 2039
Patent 9199995 | Expires: Mar 12, 2029
Patent 11806348 | Expires: Aug 30, 2039
Patent 11690842 | Expires: Aug 30, 2039
Patent RE48839 | Expires: Aug 19, 2033
Patent 11980617 | Expires: Oct 27, 2039
Patent RE48839 | Expires: Aug 19, 2033
Patent 10960009 | Expires: Dec 3, 2034
Patent RE48839 | Expires: Aug 19, 2033
Patent 10117867 | Expires: May 27, 2029
Patent 11026951 | Expires: Dec 3, 2034
Patent 11690842 | Expires: Aug 30, 2039
Patent 11690842 | Expires: Aug 30, 2039
Patent 12410195 | Expires: Dec 10, 2040
Patent 11753419 | Expires: Dec 10, 2040
Patent 8648077 | Expires: Dec 1, 2029
Patent RE48825 | Expires: Mar 12, 2029
Patent 9586960 | Expires: Mar 12, 2029
Patent 9616061 | Expires: May 27, 2029
Patent 10464938 | Expires: Mar 12, 2028

EXCLUSIVITY:
Code: I-904 | Date: Nov 5, 2028